FAERS Safety Report 11057891 (Version 1)
Quarter: 2015Q2

REPORT INFORMATION
  Report Type: Spontaneous
  Country: US (occurrence: US)
  Receive Date: 20150423
  Receipt Date: 20150423
  Transmission Date: 20150821
  Serious: No
  Sender: FDA-Public Use
  Company Number: US-TEVA-523154USA

PATIENT
  Sex: Female

DRUGS (1)
  1. HYDROCHLOROTHIAZIDE W/LOSARTAN [Suspect]
     Active Substance: HYDROCHLOROTHIAZIDE\LOSARTAN
     Dosage: 50 MG/12.5 MG
     Route: 065

REACTIONS (2)
  - Headache [Unknown]
  - Dizziness [Unknown]
